FAERS Safety Report 6628741-6 (Version None)
Quarter: 2010Q1

REPORT INFORMATION
  Report Type: 
  Country: None (occurrence: None)
  Receive Date: 20100311
  Receipt Date: 20100301
  Transmission Date: 20100710
  Serious: Yes (Hospitalization)
  Sender: FDA-Public Use
  Company Number: US-BAXTER-2010BH002517

PATIENT
  Sex: Male

DRUGS (4)
  1. DIANEAL [Suspect]
     Indication: PERITONEAL DIALYSIS
     Route: 033
     Dates: end: 20100101
  2. DIANEAL [Suspect]
     Indication: PERITONEAL DIALYSIS
     Route: 033
     Dates: end: 20100101
  3. PHENYTOIN [Concomitant]
     Indication: GRAND MAL CONVULSION
     Route: 065
  4. KEPPRA [Concomitant]
     Indication: GRAND MAL CONVULSION
     Route: 065

REACTIONS (1)
  - GRAND MAL CONVULSION [None]
